FAERS Safety Report 24966790 (Version 1)
Quarter: 2025Q1

REPORT INFORMATION
  Report Type: Spontaneous
  Country: US (occurrence: US)
  Receive Date: 20250213
  Receipt Date: 20250213
  Transmission Date: 20250408
  Serious: Yes (Hospitalization, Other)
  Sender: DEVA
  Company Number: US-DEVA-2025-US-007498

PATIENT
  Age: 76 Year
  Sex: Female

DRUGS (2)
  1. CEFTRIAXONE [Suspect]
     Active Substance: CEFTRIAXONE
     Indication: Urinary tract infection
  2. CEFPODOXIME [Suspect]
     Active Substance: CEFPODOXIME
     Indication: Urinary tract infection

REACTIONS (3)
  - Glomerulonephritis [Recovered/Resolved]
  - Antineutrophil cytoplasmic antibody positive [Recovered/Resolved]
  - Tubulointerstitial nephritis [Recovered/Resolved]
